FAERS Safety Report 9310661 (Version 2)
Quarter: 2013Q2

REPORT INFORMATION
  Report Type: Spontaneous
  Country: JP (occurrence: JP)
  Receive Date: 20130527
  Receipt Date: 20130610
  Transmission Date: 20140414
  Serious: Yes (Hospitalization, Other)
  Sender: FDA-Public Use
  Company Number: JP-009507513-1305JPN013389

PATIENT
  Age: 63 Year
  Sex: Female

DRUGS (5)
  1. GASTER D [Suspect]
     Indication: GASTRITIS
     Dosage: 20 MG, QD
     Route: 048
     Dates: start: 2010, end: 20130425
  2. GASTER D [Suspect]
     Dosage: 80 MG DAILY
     Route: 048
     Dates: start: 20130426, end: 20130428
  3. LIPITOR [Suspect]
     Indication: DYSLIPIDAEMIA
     Dosage: 10 MG, QD
     Route: 048
     Dates: end: 20130509
  4. MICOMBI [Suspect]
     Indication: HYPERTENSION
     Dosage: UNK
     Route: 048
     Dates: end: 20130509
  5. MYSLEE [Concomitant]
     Indication: INSOMNIA
     Dosage: UNK

REACTIONS (4)
  - Renal failure acute [Recovering/Resolving]
  - Blood pressure increased [Recovered/Resolved]
  - Headache [Recovered/Resolved]
  - Intentional overdose [Unknown]
